FAERS Safety Report 6195043-4 (Version None)
Quarter: 2009Q2

REPORT INFORMATION
  Report Type: 
  Country: None (occurrence: None)
  Receive Date: 20090515
  Receipt Date: 20090515
  Transmission Date: 20091009
  Serious: Yes (Disabling, Other)
  Sender: FDA-Public Use
  Company Number: None

PATIENT
  Age: 31 Year
  Sex: Female
  Weight: 89.3586 kg

DRUGS (1)
  1. MIRENA [Suspect]
     Indication: CONTRACEPTION
     Dosage: ONCE EVERY 5 YEARS INTRA-UTERINE
     Route: 015
     Dates: start: 20080414, end: 20090514

REACTIONS (15)
  - ABNORMAL WEIGHT GAIN [None]
  - ANXIETY [None]
  - DEPRESSION [None]
  - DIZZINESS [None]
  - FATIGUE [None]
  - HEADACHE [None]
  - INCREASED TENDENCY TO BRUISE [None]
  - INFLUENZA LIKE ILLNESS [None]
  - MALAISE [None]
  - MOOD SWINGS [None]
  - MUSCLE TWITCHING [None]
  - MYALGIA [None]
  - NAUSEA [None]
  - PAIN [None]
  - PALPITATIONS [None]
